FAERS Safety Report 13536840 (Version 4)
Quarter: 2017Q3

REPORT INFORMATION
  Report Type: Spontaneous
  Country: US (occurrence: US)
  Receive Date: 20170511
  Receipt Date: 20170913
  Transmission Date: 20171127
  Serious: Yes (Hospitalization, Other)
  Sender: FDA-Public Use
  Company Number: US-PFIZER INC-2017198908

PATIENT
  Age: 76 Year
  Sex: Female
  Weight: 125.2 kg

DRUGS (29)
  1. ADEMPAS [Suspect]
     Active Substance: RIOCIGUAT
     Dosage: UNK
     Route: 048
  2. SILDENAFIL CITRATE. [Suspect]
     Active Substance: SILDENAFIL CITRATE
     Dosage: UNK
  3. ORENITRAM [Suspect]
     Active Substance: TREPROSTINIL
     Dosage: 0.5 MG, 2X/DAY
     Route: 048
     Dates: start: 20170316
  4. INSULIN [Concomitant]
     Active Substance: INSULIN NOS
     Dosage: UNK
  5. ORENITRAM [Suspect]
     Active Substance: TREPROSTINIL
     Dosage: 0.5 MG, 1X/DAY (IN MORNING)
     Route: 048
     Dates: start: 20170316
  6. ORENITRAM [Suspect]
     Active Substance: TREPROSTINIL
     Dosage: 0.375 MG, 1X/DAY (AT NIGHT)
     Dates: start: 20170316
  7. ORENITRAM [Suspect]
     Active Substance: TREPROSTINIL
     Dosage: 0.25 MG, UNK
     Route: 048
     Dates: start: 20160827
  8. ORENITRAM [Suspect]
     Active Substance: TREPROSTINIL
     Dosage: UNK
     Dates: start: 20160828
  9. AMLODIPINE [Concomitant]
     Active Substance: AMLODIPINE BESYLATE
     Dosage: UNK
  10. ZANTAC [Concomitant]
     Active Substance: RANITIDINE HYDROCHLORIDE
     Dosage: UNK
  11. ORENITRAM [Suspect]
     Active Substance: TREPROSTINIL
     Indication: PULMONARY ARTERIAL HYPERTENSION
     Dosage: 0.125 MG, 2X/DAY
     Route: 048
     Dates: start: 20160901
  12. LETAIRIS [Suspect]
     Active Substance: AMBRISENTAN
     Dosage: 10 MG, 1X/DAY (DAILY)
  13. MERACOTE [Concomitant]
     Dosage: UNK
  14. ORENITRAM [Suspect]
     Active Substance: TREPROSTINIL
     Dosage: UNK
     Route: 048
  15. ORENITRAM [Suspect]
     Active Substance: TREPROSTINIL
     Dosage: UNK
     Route: 048
  16. ALDACTIN [Concomitant]
     Dosage: UNK
  17. ORENITRAM [Suspect]
     Active Substance: TREPROSTINIL
     Dosage: 0.375 MG, 2X/DAY
     Dates: start: 20170316
  18. ORENITRAM [Suspect]
     Active Substance: TREPROSTINIL
     Dosage: UNK
     Dates: start: 20160904
  19. LASIX [Concomitant]
     Active Substance: FUROSEMIDE
     Dosage: UNK
  20. PROSTEROL [Concomitant]
     Dosage: UNK
  21. ORENITRAM [Suspect]
     Active Substance: TREPROSTINIL
     Dosage: 0.825 MG, DAILY
     Route: 048
     Dates: start: 20160901
  22. ORENITRAM [Suspect]
     Active Substance: TREPROSTINIL
     Dosage: 0.375 MG, 2X/DAY
     Route: 048
     Dates: start: 20160901
  23. ORENITRAM [Suspect]
     Active Substance: TREPROSTINIL
     Dosage: 0.375 MG, 2X/DAY
     Route: 048
     Dates: start: 20160901
  24. ORENITRAM [Suspect]
     Active Substance: TREPROSTINIL
     Dosage: 0.25 MG, 2X/DAY
     Route: 048
  25. LETAIRIS [Suspect]
     Active Substance: AMBRISENTAN
     Dosage: UNK
  26. LOVASTATIN. [Suspect]
     Active Substance: LOVASTATIN
     Dosage: UNK
  27. TYLENOL [Concomitant]
     Active Substance: ACETAMINOPHEN
     Dosage: UNK UNK, AS NEEDED
  28. ORENITRAM [Suspect]
     Active Substance: TREPROSTINIL
     Dosage: UNK
     Route: 048
     Dates: start: 201708
  29. LETAIRIS [Suspect]
     Active Substance: AMBRISENTAN
     Dosage: 10 MG, 1X/DAY (QD)
     Dates: start: 20140807

REACTIONS (26)
  - Nasopharyngitis [Not Recovered/Not Resolved]
  - Pain [Recovered/Resolved]
  - Epistaxis [Unknown]
  - Weight increased [Unknown]
  - Condition aggravated [Not Recovered/Not Resolved]
  - Pulmonary arterial pressure increased [Not Recovered/Not Resolved]
  - Drug intolerance [Unknown]
  - Dizziness [Recovering/Resolving]
  - Asthenia [Recovering/Resolving]
  - Back pain [Recovered/Resolved]
  - Arthralgia [Not Recovered/Not Resolved]
  - Muscular weakness [Not Recovered/Not Resolved]
  - Dyspnoea [Recovering/Resolving]
  - Asthenia [Recovering/Resolving]
  - Fatigue [Recovering/Resolving]
  - Drug dose omission [Recovered/Resolved]
  - Productive cough [Unknown]
  - Dyspnoea exertional [Recovered/Resolved]
  - Myalgia [Unknown]
  - Syncope [Unknown]
  - Drug ineffective [Unknown]
  - Arthralgia [Unknown]
  - Cough [Not Recovered/Not Resolved]
  - Musculoskeletal stiffness [Not Recovered/Not Resolved]
  - Joint stiffness [Not Recovered/Not Resolved]
  - Gait disturbance [Unknown]

NARRATIVE: CASE EVENT DATE: 20170209
